FAERS Safety Report 6684333-4 (Version None)
Quarter: 2010Q2

REPORT INFORMATION
  Report Type: 
  Country: None (occurrence: None)
  Receive Date: 20100416
  Receipt Date: 20100407
  Transmission Date: 20101027
  Serious: Yes (Other)
  Sender: FDA-Public Use
  Company Number: PHHY2009GB30605

PATIENT
  Sex: Male

DRUGS (11)
  1. CARBAMAZEPINE [Suspect]
     Indication: TRIGEMINAL NEURALGIA
     Dosage: 800 MG/DAY
     Dates: start: 20040101, end: 20050801
  2. VENLAFAXINE HCL [Concomitant]
     Indication: DEPRESSION
     Dosage: 300MG/DAY
     Route: 048
  3. PROCYCLIDINE HYDROCHLORIDE 2MG TAB [Concomitant]
     Indication: MOVEMENT DISORDER
     Dosage: 5MG/DAY
     Route: 048
  4. TRAZODONE [Concomitant]
     Dosage: 50MG/DAY
     Route: 048
     Dates: end: 20040101
  5. OLANZAPINE [Concomitant]
     Dosage: 5MG/DAY
     Route: 048
  6. SILDENAFIL [Concomitant]
     Dosage: 50 MG, UNK
     Route: 048
  7. CHLORDIAZEPOXIDE [Concomitant]
     Indication: SOCIAL PHOBIA
     Dosage: PRN
     Route: 048
  8. OMEPRAZOLE [Concomitant]
  9. DICLOFENAC SODIUM [Concomitant]
     Dosage: UNK
  10. DIAZEPAM [Concomitant]
     Dosage: PRN
  11. BUSPIRONE HCL [Concomitant]
     Dosage: 40 MG, UNK
     Route: 048
     Dates: start: 20050101

REACTIONS (3)
  - DRUG LEVEL INCREASED [None]
  - LIVER FUNCTION TEST ABNORMAL [None]
  - PARKINSONISM [None]
